FAERS Safety Report 6571019-X (Version None)
Quarter: 2010Q1

REPORT INFORMATION
  Report Type: 
  Country: None (occurrence: None)
  Receive Date: 20100204
  Receipt Date: 20100128
  Transmission Date: 20100710
  Serious: Yes (Hospitalization, Other)
  Sender: FDA-Public Use
  Company Number: US-AMGEN-US376097

PATIENT
  Sex: Female

DRUGS (10)
  1. NPLATE [Suspect]
     Indication: IDIOPATHIC THROMBOCYTOPENIC PURPURA
     Dates: start: 20090529, end: 20090626
  2. PROMACTA [Concomitant]
  3. ATENOLOL [Concomitant]
  4. OSCAL D [Concomitant]
  5. AMICAR [Concomitant]
  6. MULTI-VITAMINS [Concomitant]
  7. PRISTIQ [Concomitant]
  8. VITAMIN C [Concomitant]
  9. ACTONEL [Concomitant]
  10. IMMU-G [Concomitant]
     Route: 042

REACTIONS (4)
  - DRUG INEFFECTIVE [None]
  - GASTROINTESTINAL HAEMORRHAGE [None]
  - MYELODYSPLASTIC SYNDROME [None]
  - THROMBOCYTOPENIA [None]
